FAERS Safety Report 8816170 (Version 2)
Quarter: 2012Q4

REPORT INFORMATION
  Report Type: Report from Study
  Country: JP (occurrence: JP)
  Receive Date: 20120929
  Receipt Date: 20121011
  Transmission Date: 20130627
  Serious: Yes (Other)
  Sender: FDA-Public Use
  Company Number: JP-009507513-2012SP028719

PATIENT
  Age: 44 Year
  Sex: Female
  Weight: 52 kg

DRUGS (20)
  1. PEGINTRON [Suspect]
     Indication: HEPATITIS C
     Dosage: 80 Microgram, qw
     Route: 058
     Dates: start: 20120315, end: 20120829
  2. REBETOL [Suspect]
     Indication: HEPATITIS C
     Dosage: 600 mg, QD
     Route: 048
     Dates: start: 20120315
  3. REBETOL [Suspect]
     Dosage: 400 mg, QD
     Route: 048
     Dates: start: 20120404, end: 20120829
  4. TELAVIC [Suspect]
     Indication: HEPATITIS C
     Dosage: 2250 mg, QD
     Route: 048
     Dates: start: 20120315, end: 20120317
  5. TELAVIC [Suspect]
     Dosage: 1500 mg, QD
     Route: 048
     Dates: start: 20120317, end: 20120320
  6. TELAVIC [Suspect]
     Dosage: 750 mg, QD
     Route: 048
     Dates: start: 20120320, end: 20120606
  7. LOXONIN [Concomitant]
     Indication: ARTHRITIS REACTIVE
     Dosage: UNK, prn
     Route: 048
  8. PREDNISOLONE [Concomitant]
     Indication: ARTHRITIS REACTIVE
     Dosage: 5 mg, qd
     Route: 048
  9. PREDNISOLONE [Concomitant]
     Indication: OSTEOPOROSIS
     Dosage: 3 mg, qd
     Route: 048
  10. PREDNISOLONE [Concomitant]
     Indication: ARTHRITIS
  11. ONEALFA [Concomitant]
     Indication: ARTHRITIS REACTIVE
     Dosage: 0.5 Microgram, qd
     Route: 048
  12. BONALON [Concomitant]
     Indication: ARTHRITIS REACTIVE
     Dosage: 35 mg, qd
     Route: 048
  13. BONALON [Concomitant]
     Indication: OSTEOPOROSIS
  14. TAKEPRON [Concomitant]
     Indication: PROPHYLAXIS AGAINST GASTROINTESTINAL ULCER
     Dosage: 15 mg, QD
     Route: 048
  15. AZULFIDINE EN [Concomitant]
     Indication: ARTHRITIS REACTIVE
     Dosage: 500 mg, qd
     Route: 048
  16. AZULFIDINE EN [Concomitant]
     Indication: MUSCULOSKELETAL PAIN
  17. MAGMITT [Concomitant]
     Indication: CONSTIPATION
     Dosage: UNK, prn
     Route: 048
  18. GASMOTIN [Concomitant]
     Indication: PROPHYLAXIS
     Dosage: 15 mg, QD
     Route: 048
     Dates: start: 20120315, end: 20120607
  19. GASMOTIN [Concomitant]
     Indication: DECREASED APPETITE
  20. PREDONINE [Concomitant]
     Indication: RHEUMATOID ARTHRITIS
     Dosage: 4 mg, qd, formulation:POR
     Route: 048

REACTIONS (2)
  - Nausea [Recovering/Resolving]
  - Decreased appetite [Recovering/Resolving]
